FAERS Safety Report 4795202-9 (Version None)
Quarter: 2005Q4

REPORT INFORMATION
  Report Type: 
  Country: None (occurrence: None)
  Receive Date: 20051006
  Receipt Date: 20050905
  Transmission Date: 20060501
  Serious: Yes (Other)
  Sender: FDA-Public Use
  Company Number: 2005EU002018

PATIENT
  Age: 54 Year
  Sex: Male

DRUGS (1)
  1. PROGRAF [Suspect]
     Indication: LIVER TRANSPLANT
     Dates: start: 20030401

REACTIONS (8)
  - ASPERGILLOSIS [None]
  - BLOOD CULTURE POSITIVE [None]
  - DRUG INTERACTION [None]
  - DRUG TOXICITY [None]
  - ISCHAEMIA [None]
  - OESOPHAGEAL PERFORATION [None]
  - STAPHYLOCOCCAL INFECTION [None]
  - WOUND INFECTION [None]
